FAERS Safety Report 6464381-X (Version None)
Quarter: 2009Q4

REPORT INFORMATION
  Report Type: 
  Country: None (occurrence: None)
  Receive Date: 20091201
  Receipt Date: 20090219
  Transmission Date: 20100525
  Serious: No
  Sender: FDA-Public Use
  Company Number: US-AMGEN-COG334888

PATIENT
  Sex: Female

DRUGS (1)
  1. ENBREL [Suspect]
     Indication: PSORIASIS

REACTIONS (5)
  - HEADACHE [None]
  - NECK MASS [None]
  - NECK PAIN [None]
  - OROPHARYNGEAL PAIN [None]
  - SWELLING [None]
